FAERS Safety Report 24446252 (Version 1)
Quarter: 2024Q4

REPORT INFORMATION
  Report Type: Spontaneous
  Country: US (occurrence: US)
  Receive Date: 20241016
  Receipt Date: 20241016
  Transmission Date: 20250115
  Serious: Yes (Other)
  Sender: BIOVITRUM
  Company Number: US-BIOVITRUM-2024-US-013029

PATIENT
  Age: 81 Year
  Sex: Male

DRUGS (1)
  1. VONJO [Suspect]
     Active Substance: PACRITINIB
     Indication: Myelofibrosis
     Dosage: 200 MG, TWICE DAILY
     Route: 048
     Dates: start: 20240315

REACTIONS (7)
  - Precancerous lesion of digestive tract [Unknown]
  - Helicobacter infection [Unknown]
  - Gallbladder rupture [Unknown]
  - Platelet count increased [Unknown]
  - Seasonal allergy [Unknown]
  - Nasopharyngitis [Unknown]
  - Product dose omission issue [Unknown]

NARRATIVE: CASE EVENT DATE: 20240701
